FAERS Safety Report 10618670 (Version 2)
Quarter: 2015Q2

REPORT INFORMATION
  Report Type: Report from Study
  Country: GB (occurrence: None)
  Receive Date: 20141125
  Receipt Date: 20150508
  Transmission Date: 20150821
  Serious: Yes (Hospitalization, Other)
  Sender: FDA-Public Use
  Company Number: GB2014GSK025089

PATIENT
  Age: 67 Year

DRUGS (1)
  1. MARAVIROC (MARAVIROC) FLIM-COATED TABLET [Suspect]
     Active Substance: MARAVIROC
     Indication: HIV INFECTION
     Dates: start: 20100317

REACTIONS (3)
  - Myocardial infarction [None]
  - Myalgia [None]
  - Productive cough [None]

NARRATIVE: CASE EVENT DATE: 20120419
